FAERS Safety Report 15357742 (Version 3)
Quarter: 2018Q4

REPORT INFORMATION
  Report Type: Report from Study
  Country: US (occurrence: US)
  Receive Date: 20180906
  Receipt Date: 20181025
  Transmission Date: 20190204
  Serious: No
  Sender: FDA-Public Use
  Company Number: US-ACTELION-A-US2018-177556

PATIENT
  Age: 94 Year
  Sex: Male

DRUGS (1)
  1. OPSUMIT [Suspect]
     Active Substance: MACITENTAN
     Indication: PRODUCT USED FOR UNKNOWN INDICATION
     Dosage: 10 MG, UNK
     Route: 048
     Dates: end: 20181012

REACTIONS (8)
  - Upper respiratory tract infection [Unknown]
  - Dyspnoea [Unknown]
  - Urinary tract infection [Unknown]
  - Oropharyngeal pain [Unknown]
  - Chromaturia [Unknown]
  - Weight increased [Unknown]
  - Tremor [Unknown]
  - Nasopharyngitis [Unknown]
